FAERS Safety Report 11359602 (Version 3)
Quarter: 2016Q3

REPORT INFORMATION
  Report Type: Spontaneous
  Country: US (occurrence: US)
  Receive Date: 20150807
  Receipt Date: 20160718
  Transmission Date: 20161109
  Serious: Yes (Other)
  Sender: FDA-Public Use
  Company Number: US-ASTRAZENECA-2015SE73882

PATIENT
  Age: 58 Year
  Sex: Male
  Weight: 98.9 kg

DRUGS (15)
  1. METFORMIN [Concomitant]
     Active Substance: METFORMIN HYDROCHLORIDE
     Indication: TYPE 2 DIABETES MELLITUS
  2. LOSARTAN. [Concomitant]
     Active Substance: LOSARTAN
     Dosage: DAILY
  3. NORVASC [Concomitant]
     Active Substance: AMLODIPINE BESYLATE
  4. LOSARTAN. [Concomitant]
     Active Substance: LOSARTAN
     Dates: start: 201603, end: 201605
  5. LABETALOL [Concomitant]
     Active Substance: LABETALOL\LABETALOL HYDROCHLORIDE
     Indication: HYPERTENSION
  6. AMLODIPINE [Concomitant]
     Active Substance: AMLODIPINE BESYLATE
     Indication: HYPERTENSION
     Dates: start: 2008
  7. METOPROLOL. [Suspect]
     Active Substance: METOPROLOL
     Route: 048
     Dates: start: 201603
  8. METFORMIN [Concomitant]
     Active Substance: METFORMIN HYDROCHLORIDE
     Indication: TYPE 2 DIABETES MELLITUS
  9. PRALUENT [Concomitant]
     Active Substance: ALIROCUMAB
     Indication: BLOOD CHOLESTEROL INCREASED
     Route: 058
     Dates: start: 201603, end: 201605
  10. METOPROLOL. [Suspect]
     Active Substance: METOPROLOL
     Route: 048
     Dates: start: 2010, end: 201603
  11. BYDUREON [Suspect]
     Active Substance: EXENATIDE
     Indication: TYPE 2 DIABETES MELLITUS
     Route: 058
     Dates: start: 2012, end: 201405
  12. BETA BLOCKER [Concomitant]
     Active Substance: UNSPECIFIED INGREDIENT
  13. BYDUREON [Suspect]
     Active Substance: EXENATIDE
     Indication: TYPE 2 DIABETES MELLITUS
     Route: 058
     Dates: start: 201408
  14. BABY ASPIRIN [Concomitant]
     Active Substance: ASPIRIN
  15. VALSARTAN. [Concomitant]
     Active Substance: VALSARTAN
     Indication: HYPERTENSION
     Dosage: IN MARCH OR APRIL 2016

REACTIONS (14)
  - Nausea [Unknown]
  - Sleep apnoea syndrome [Unknown]
  - Abdominal discomfort [Unknown]
  - Pain [Unknown]
  - Flatulence [Unknown]
  - Prostate cancer [Unknown]
  - Blood creatine phosphokinase MB abnormal [Unknown]
  - Abdominal pain upper [Unknown]
  - Glycosylated haemoglobin increased [Unknown]
  - Drug effect decreased [Unknown]
  - Feeling abnormal [Unknown]
  - Hunger [Unknown]
  - Cough [Unknown]
  - Drug dose omission [Unknown]

NARRATIVE: CASE EVENT DATE: 2010
